FAERS Safety Report 10138071 (Version 3)
Quarter: 2014Q4

REPORT INFORMATION
  Report Type: Report from Study
  Country: CN (occurrence: CN)
  Receive Date: 20140429
  Receipt Date: 20141121
  Transmission Date: 20150528
  Serious: Yes (Other)
  Sender: FDA-Public Use
  Company Number: PHHY2014CN051221

PATIENT
  Age: 47 Year
  Sex: Female

DRUGS (2)
  1. VAA489A [Suspect]
     Active Substance: AMLODIPINE\VALSARTAN
     Indication: HYPERTENSION
     Dosage: 1 DF, QD (80MG/ 5MG)
     Route: 048
     Dates: start: 20131101
  2. VAA489A [Suspect]
     Active Substance: AMLODIPINE\VALSARTAN
     Dosage: 1 DF, QD (80MG/ 5MG)
     Route: 048
     Dates: start: 20140108

REACTIONS (3)
  - Paralysis [Unknown]
  - Palpitations [Recovered/Resolved]
  - Pruritus [Unknown]

NARRATIVE: CASE EVENT DATE: 20140315
